FAERS Safety Report 18607040 (Version 1)
Quarter: 2020Q4

REPORT INFORMATION
  Report Type: Spontaneous
  Country: GT (occurrence: GT)
  Receive Date: 20201212
  Receipt Date: 20201212
  Transmission Date: 20210114
  Serious: Yes (Other)
  Sender: FDA-Public Use
  Company Number: GT-ROCHE-2730420

PATIENT
  Age: 84 Year
  Sex: Female
  Weight: 45.4 kg

DRUGS (2)
  1. BONVIVA [Suspect]
     Active Substance: IBANDRONATE SODIUM
     Indication: OSTEOPOROSIS
     Dosage: 1 VIAL OF 1 ML (3MG/ML)
     Route: 042
     Dates: start: 20201204, end: 20201204
  2. LORATADINE. [Concomitant]
     Active Substance: LORATADINE
     Indication: ANTIALLERGIC THERAPY
     Dosage: 1 TABLET
     Route: 048
     Dates: start: 20201204, end: 20201205

REACTIONS (4)
  - Altered state of consciousness [Recovered/Resolved]
  - Angioedema [Recovered/Resolved]
  - Tachycardia [Unknown]
  - Blood pressure increased [Unknown]

NARRATIVE: CASE EVENT DATE: 20201205
